FAERS Safety Report 8826395 (Version 1)
Quarter: 2012Q4

REPORT INFORMATION
  Report Type: 
  Country: US (occurrence: US)
  Receive Date: 20121005
  Receipt Date: 20121005
  Transmission Date: 20130627
  Serious: No
  Sender: FDA-Public Use
  Company Number: US-B.I. PHARMACEUTICALS,INC./RIDGEFIELD-2012-BP-24372BP

PATIENT
  Age: 42 Year
  Sex: Female
  Weight: 68 kg

DRUGS (1)
  1. COMBIVENT [Suspect]
     Indication: BRONCHITIS
     Route: 055
     Dates: start: 20120926

REACTIONS (2)
  - Chest discomfort [Not Recovered/Not Resolved]
  - Dyspnoea [Not Recovered/Not Resolved]
